FAERS Safety Report 6167073-X (Version None)
Quarter: 2009Q2

REPORT INFORMATION
  Report Type: 
  Country: None (occurrence: None)
  Receive Date: 20090424
  Receipt Date: 20090413
  Transmission Date: 20091009
  Serious: Yes (Other)
  Sender: FDA-Public Use
  Company Number: US-PFIZER INC-2009200132

PATIENT
  Sex: Female
  Weight: 106.59 kg

DRUGS (6)
  1. ZYVOX [Suspect]
     Indication: CELLULITIS
     Dosage: UNK
     Dates: start: 20090321
  2. DEPAKOTE [Concomitant]
  3. AMARYL [Concomitant]
  4. CLONIDINE [Concomitant]
  5. LOTREL [Concomitant]
  6. LASIX [Concomitant]

REACTIONS (5)
  - DIARRHOEA [None]
  - DIPLOPIA [None]
  - HAEMATOCHEZIA [None]
  - HEADACHE [None]
  - VOMITING [None]
